FAERS Safety Report 10496167 (Version 2)
Quarter: 2014Q4

REPORT INFORMATION
  Report Type: Report from Study
  Country: DE (occurrence: DE)
  Receive Date: 20141003
  Receipt Date: 20141003
  Transmission Date: 20150528
  Serious: Yes (Death, Life-Threatening, Hospitalization, Other)
  Sender: FDA-Public Use
  Company Number: DE-ASTRAZENECA-2014SE65067

PATIENT
  Age: 30054 Day
  Sex: Male

DRUGS (13)
  1. CEFAZOLIN [Concomitant]
     Active Substance: CEFAZOLIN
     Dosage: 2 G
     Route: 042
     Dates: start: 20140110
  2. SIMVASTATIN. [Concomitant]
     Active Substance: SIMVASTATIN
     Dosage: 20 MG
  3. ASPIRIN (NON-AZ PRODUCT) [Suspect]
     Active Substance: ASPIRIN
     Indication: THROMBOSIS PROPHYLAXIS
     Dosage: 400 MG LOADING DOSE PRIOR TO INDEX PROCEDURE
     Route: 048
     Dates: start: 20140110
  4. MORPHINE [Concomitant]
     Active Substance: MORPHINE
     Dosage: 7 ML
     Route: 042
     Dates: start: 20140110
  5. TICAGRELOR [Suspect]
     Active Substance: TICAGRELOR
     Indication: THROMBOSIS PROPHYLAXIS
     Dosage: 180 MG
     Route: 048
     Dates: start: 20140110
  6. CLOPIDOGREL (NON-AZ PRODUCT) [Suspect]
     Active Substance: CLOPIDOGREL BISULFATE
     Indication: THROMBOSIS PROPHYLAXIS
     Dosage: 600 MG LOADING DOSE PRIOR TO INDEX PROCEDURE
     Route: 048
     Dates: start: 20140110
  7. BIVALIRUDINE [Suspect]
     Active Substance: BIVALIRUDIN
     Dosage: 9.5 MG
     Route: 042
     Dates: start: 20140110
  8. DORMICUM [Concomitant]
     Active Substance: MIDAZOLAM\MIDAZOLAM HYDROCHLORIDE
     Dosage: 7 ML
     Route: 042
     Dates: start: 20140110
  9. REOPRO BOLUS(ABCIXIMAB) [Concomitant]
     Dosage: 7.8 ML
     Route: 042
     Dates: start: 20140110
  10. BISOPROLOL [Concomitant]
     Active Substance: BISOPROLOL
     Dosage: 2.5 MG
  11. HEPARIN [Concomitant]
     Active Substance: HEPARIN SODIUM
     Dosage: 300 IU
     Route: 042
     Dates: start: 20140110
  12. RAMIPRIL. [Concomitant]
     Active Substance: RAMIPRIL
     Dosage: 2.5 MG
  13. ARTERENOL(NOREPINEPHRINE) [Concomitant]
     Dosage: 6 ML
     Route: 042
     Dates: start: 20140110

REACTIONS (4)
  - Intrapericardial thrombosis [Fatal]
  - Acute myocardial infarction [Fatal]
  - Cardiogenic shock [Fatal]
  - Cardiac tamponade [Fatal]

NARRATIVE: CASE EVENT DATE: 20140110
